FAERS Safety Report 20224038 (Version 1)
Quarter: 2021Q4

REPORT INFORMATION
  Report Type: Spontaneous
  Country: NO (occurrence: NO)
  Receive Date: 20211223
  Receipt Date: 20211223
  Transmission Date: 20220303
  Serious: Yes (Hospitalization, Other)
  Sender: FDA-Public Use
  Company Number: None

PATIENT
  Age: 40 Year
  Sex: Male

DRUGS (2)
  1. SKYRIZI [Suspect]
     Active Substance: RISANKIZUMAB-RZAA
     Indication: Psoriasis
     Dosage: FIRST DOSE: 2 INJEC, THEN 2 INJEC AFTER FOUR WEEKS AND THEN 2 INJEC EVERY 12TH WEEK
     Route: 058
     Dates: start: 20210507
  2. SPIKEVAX [Suspect]
     Active Substance: ELASOMERAN
     Indication: Immunisation
     Dosage: DOSE NO. IN SERIES: 3
     Route: 030
     Dates: start: 20210929

REACTIONS (2)
  - Guillain-Barre syndrome [Not Recovered/Not Resolved]
  - COVID-19 immunisation [Recovered/Resolved]

NARRATIVE: CASE EVENT DATE: 20210929
